FAERS Safety Report 16882466 (Version 1)
Quarter: 2019Q4

REPORT INFORMATION
  Report Type: Spontaneous
  Country: US (occurrence: US)
  Receive Date: 20191003
  Receipt Date: 20191003
  Transmission Date: 20200122
  Serious: No
  Sender: FDA-Public Use
  Company Number: US-JAZZ-JPI-P-029546

PATIENT
  Sex: Female
  Weight: 73.18 kg

DRUGS (11)
  1. XYREM [Suspect]
     Active Substance: SODIUM OXYBATE
     Indication: CATAPLEXY
     Dosage: UNK UNKNOWN, SINGLE
     Route: 048
     Dates: start: 200312, end: 20031229
  2. MAXZIDE [Concomitant]
     Active Substance: HYDROCHLOROTHIAZIDE\TRIAMTERENE
  3. MOMETASONE FUROATE. [Concomitant]
     Active Substance: MOMETASONE FUROATE
  4. XYREM [Suspect]
     Active Substance: SODIUM OXYBATE
     Indication: NARCOLEPSY
     Dosage: 2.25 G, BID
     Route: 048
     Dates: start: 20031209, end: 200312
  5. XYREM [Suspect]
     Active Substance: SODIUM OXYBATE
     Dosage: 2.25 G, BID
     Route: 048
     Dates: start: 20110419
  6. TEMAZEPAM. [Concomitant]
     Active Substance: TEMAZEPAM
  7. MIRAPEX [Concomitant]
     Active Substance: PRAMIPEXOLE DIHYDROCHLORIDE
  8. REQUIP [Suspect]
     Active Substance: ROPINIROLE HYDROCHLORIDE
     Indication: PRODUCT USED FOR UNKNOWN INDICATION
  9. DEXEDRINE [Concomitant]
     Active Substance: DEXTROAMPHETAMINE SULFATE
  10. IRON [Concomitant]
     Active Substance: IRON
  11. NUVIGIL [Concomitant]
     Active Substance: ARMODAFINIL

REACTIONS (19)
  - Hypersomnia [Unknown]
  - Weight increased [Unknown]
  - Poor quality sleep [Unknown]
  - Somnolence [Unknown]
  - Nausea [Unknown]
  - Vomiting [Unknown]
  - Temperature intolerance [Unknown]
  - Respiratory disorder [Unknown]
  - Periodic limb movement disorder [Unknown]
  - Fatigue [Unknown]
  - Palpitations [Unknown]
  - Nasal congestion [Unknown]
  - Heart rate irregular [Unknown]
  - Cough [Unknown]
  - Anaemia [Not Recovered/Not Resolved]
  - Muscle spasms [Unknown]
  - Headache [Unknown]
  - Skin lesion [Unknown]
  - Restless legs syndrome [Recovering/Resolving]
